FAERS Safety Report 18521525 (Version 1)
Quarter: 2020Q4

REPORT INFORMATION
  Report Type: Spontaneous
  Country: US (occurrence: US)
  Receive Date: 20201118
  Receipt Date: 20201118
  Transmission Date: 20210114
  Serious: Yes (Other)
  Sender: FDA-Public Use
  Company Number: None

PATIENT
  Age: 37 Year
  Sex: Female
  Weight: 61.69 kg

DRUGS (3)
  1. ETHINYL ESTRADIOL [Concomitant]
     Active Substance: ETHINYL ESTRADIOL
  2. PARAGARD T 380A [Suspect]
     Active Substance: COPPER
     Dates: start: 20070831, end: 20201117
  3. LEVONORGESTREL. [Concomitant]
     Active Substance: LEVONORGESTREL

REACTIONS (2)
  - Device breakage [None]
  - Complication of device removal [None]

NARRATIVE: CASE EVENT DATE: 20201117
